FAERS Safety Report 8395976-4 (Version None)
Quarter: 2012Q2

REPORT INFORMATION
  Report Type: 
  Country: None (occurrence: None)
  Receive Date: 20120530
  Receipt Date: 20120521
  Transmission Date: 20120825
  Serious: Yes (Hospitalization, Other)
  Sender: FDA-Public Use
  Company Number: GB-TEVA-339413USA

PATIENT
  Age: 66 Year
  Sex: Male

DRUGS (20)
  1. RITUXIMAB [Suspect]
     Indication: NON-HODGKIN'S LYMPHOMA
     Route: 042
     Dates: end: 20120423
  2. ESOMEPRAZOLE MAGNESIUM [Concomitant]
     Indication: DYSPEPSIA
     Dosage: 40 MILLIGRAM;
     Dates: start: 20111114
  3. OXYCODONE HYDROCHLORIDE [Concomitant]
     Indication: BACK PAIN
     Dosage: 10 MILLIGRAM;
     Dates: start: 20120323
  4. OXYCODONE HYDROCHLORIDE [Concomitant]
     Dates: start: 20120323
  5. LACTULOSE [Concomitant]
     Dates: start: 20120323, end: 20120417
  6. CODEINE LINCTUS [Concomitant]
     Indication: COUGH
     Dosage: 30 MILLIGRAM;
     Dates: start: 20120326, end: 20120404
  7. SENNA ALEXANDRINA [Concomitant]
     Indication: CONSTIPATION
     Dates: start: 20120324
  8. ENOXAPARIN SODIUM [Suspect]
     Indication: PULMONARY EMBOLISM
     Route: 058
     Dates: start: 20120405
  9. TAMSULOSIN HCL [Concomitant]
     Indication: LOWER URINARY TRACT SYMPTOMS
     Dates: start: 20110810
  10. LIDOCAINE [Concomitant]
     Indication: BACK PAIN
     Dates: start: 20120323
  11. ACETAMINOPHEN [Concomitant]
     Indication: BACK PAIN
     Dosage: 4 GRAM;
     Dates: start: 20120323
  12. TREANDA [Suspect]
  13. PREDNISOLONE [Concomitant]
     Indication: PNEUMONITIS
     Dates: start: 20120328
  14. ALLOPURINOL [Concomitant]
     Dates: start: 20091209
  15. BISOPROLOL FUMARATE [Concomitant]
     Indication: TACHYCARDIA
     Dosage: 1.25 MILLIGRAM;
     Dates: start: 20120301
  16. PREGABALIN [Concomitant]
     Indication: BACK PAIN
     Dosage: 100 MILLIGRAM;
     Dates: start: 20120326, end: 20120403
  17. VALACYCLOVIR HYDROCHLORIDE [Concomitant]
     Indication: HERPES VIRUS INFECTION
     Dosage: 500 MILLIGRAM;
     Dates: start: 20120429
  18. COTRIM [Concomitant]
     Indication: PNEUMONITIS
     Dates: start: 20120328, end: 20120404
  19. CALCIUM CARBONATE [Concomitant]
     Dosage: 2 TABLET;
     Dates: start: 20120323
  20. FOLIC ACID [Concomitant]
     Dosage: 5 MILLIGRAM;
     Dates: start: 20120302

REACTIONS (1)
  - ABDOMINAL WALL HAEMATOMA [None]
